FAERS Safety Report 8818254 (Version 6)
Quarter: 2013Q3

REPORT INFORMATION
  Report Type: Report from Study
  Country: JP (occurrence: JP)
  Receive Date: 20121001
  Receipt Date: 20130827
  Transmission Date: 20140515
  Serious: Yes (Other)
  Sender: FDA-Public Use
  Company Number: JP-GLAXOSMITHKLINE-B0808139A

PATIENT
  Age: 27 Year
  Sex: Male
  Weight: 83 kg

DRUGS (40)
  1. ARRANON [Suspect]
     Indication: PRECURSOR T-LYMPHOBLASTIC LYMPHOMA/LEUKAEMIA STAGE I
     Dosage: 1500MGM2 ALTERNATE DAYS
     Route: 042
     Dates: start: 20120522, end: 20120526
  2. ARRANON [Suspect]
     Indication: PRECURSOR T-LYMPHOBLASTIC LYMPHOMA/LEUKAEMIA STAGE I
     Dosage: 1500MGM2 ALTERNATE DAYS
     Route: 042
     Dates: start: 20120618, end: 20120620
  3. TRAMCET [Suspect]
     Indication: CANCER PAIN
     Route: 048
     Dates: start: 20120519, end: 20120523
  4. LORFENAMIN [Suspect]
     Indication: CANCER PAIN
     Route: 048
     Dates: start: 20120516, end: 20120806
  5. CYLOCIDE N [Concomitant]
     Indication: NEOPLASM MALIGNANT
     Dates: start: 20081007, end: 20120707
  6. EMEND [Concomitant]
     Indication: PROPHYLAXIS
     Route: 048
     Dates: start: 20120522, end: 20120526
  7. OXYCONTIN [Concomitant]
     Route: 048
     Dates: start: 20120519, end: 20120519
  8. NOVAMIN [Concomitant]
     Indication: NAUSEA
     Route: 048
     Dates: start: 20120519, end: 20120809
  9. BAKTAR [Concomitant]
     Indication: ANTIFUNGAL PROPHYLAXIS
     Route: 048
     Dates: start: 20120516, end: 20120914
  10. PARIET [Concomitant]
     Indication: PROPHYLAXIS AGAINST GASTROINTESTINAL ULCER
     Route: 048
     Dates: start: 20120508, end: 20120918
  11. PURSENNID [Concomitant]
     Indication: CONSTIPATION
     Route: 048
     Dates: start: 20120522, end: 20120728
  12. ATARAXP [Concomitant]
     Dates: start: 20120521, end: 20120722
  13. GRANISETRON [Concomitant]
     Indication: PROPHYLAXIS
     Route: 042
     Dates: start: 20120522, end: 20120709
  14. PANTOL [Concomitant]
     Indication: CONSTIPATION
     Dates: start: 20120603, end: 20120705
  15. PRIMPERAN [Concomitant]
     Indication: NAUSEA
     Dates: start: 20120525, end: 20120531
  16. RASURITEK [Concomitant]
     Indication: PROPHYLAXIS
     Route: 042
     Dates: start: 20120521, end: 20120527
  17. FLOMOX [Concomitant]
     Indication: INFECTION PROPHYLAXIS
     Route: 048
     Dates: start: 20120612, end: 20120807
  18. METHOTREXATE [Concomitant]
     Route: 042
     Dates: start: 20120625, end: 20120625
  19. PREDONINE [Concomitant]
     Dates: start: 20120625, end: 20120918
  20. URSO [Concomitant]
     Route: 048
     Dates: start: 20120705, end: 20120918
  21. VICCLOX [Concomitant]
     Route: 048
     Dates: start: 20120705, end: 20120728
  22. BLADDERON [Concomitant]
     Route: 048
     Dates: start: 20120726, end: 20120728
  23. VANCOMYCIN [Concomitant]
     Route: 042
     Dates: start: 20120720, end: 20120727
  24. FINIBAX [Concomitant]
     Route: 042
     Dates: start: 20120720, end: 20120730
  25. MEYLON [Concomitant]
     Route: 042
     Dates: start: 20120708, end: 20120709
  26. ALKERAN [Concomitant]
     Route: 042
     Dates: start: 20120708, end: 20120709
  27. GRAN [Concomitant]
     Indication: PROPHYLAXIS
     Route: 042
     Dates: start: 20120728, end: 20120728
  28. CHLOR-TRIMETON [Concomitant]
     Dates: start: 20120714, end: 20120809
  29. GLOVENIN-I [Concomitant]
     Dates: start: 20120706, end: 20120804
  30. THYMOGLOBULINE [Concomitant]
     Route: 042
     Dates: start: 20120706, end: 20120711
  31. SAXIZON [Concomitant]
     Dates: start: 20120706, end: 20120707
  32. ZOSYN [Concomitant]
     Route: 042
     Dates: start: 20120713, end: 20120720
  33. HUMACART R [Concomitant]
     Dates: start: 20120714, end: 20120730
  34. FUNGUARD [Concomitant]
     Route: 042
     Dates: start: 20120704, end: 20120728
  35. VFEND [Concomitant]
     Route: 042
     Dates: start: 20120721, end: 20120730
  36. PRIDOL [Concomitant]
     Dates: start: 20120710, end: 20120802
  37. FLUDARA [Concomitant]
     Route: 042
     Dates: start: 20120704, end: 20120728
  38. PROGRAF [Concomitant]
     Route: 042
     Dates: start: 20120711, end: 20120918
  39. FUROSEMIDE [Concomitant]
     Dates: start: 20120704, end: 20120726
  40. ADEFURONIC [Concomitant]
     Route: 048
     Dates: start: 20120806, end: 20120815

REACTIONS (4)
  - Bone marrow failure [Recovered/Resolved]
  - Dysuria [Recovering/Resolving]
  - Constipation [Recovering/Resolving]
  - Gastritis [Recovered/Resolved]
